FAERS Safety Report 25486895 (Version 1)
Quarter: 2025Q2

REPORT INFORMATION
  Report Type: Spontaneous
  Country: FR (occurrence: FR)
  Receive Date: 20250627
  Receipt Date: 20250627
  Transmission Date: 20250716
  Serious: Yes (Death, Hospitalization, Other)
  Sender: SANDOZ
  Company Number: FR-002147023-NVSC2020FR109373

PATIENT
  Age: 15 Year
  Sex: Male

DRUGS (28)
  1. AMSACRINE [Suspect]
     Active Substance: AMSACRINE
     Indication: Acute myeloid leukaemia
     Dosage: 100 MG/M2 DAILY; FOR 3 DAYS DURING CONSOLIDATION THERAPY
     Route: 065
  2. ASPARAGINASE [Suspect]
     Active Substance: ASPARAGINASE
     Indication: Acute myeloid leukaemia refractory
     Route: 065
  3. BUSULFAN [Suspect]
     Active Substance: BUSULFAN
     Indication: Acute myeloid leukaemia refractory
     Route: 065
  4. BUSULFAN [Suspect]
     Active Substance: BUSULFAN
     Indication: Drug therapy
  5. CYCLOPHOSPHAMIDE [Suspect]
     Active Substance: CYCLOPHOSPHAMIDE
     Indication: Acute myeloid leukaemia refractory
     Route: 065
  6. CYCLOPHOSPHAMIDE [Suspect]
     Active Substance: CYCLOPHOSPHAMIDE
     Indication: Bone marrow conditioning regimen
  7. CYCLOPHOSPHAMIDE [Suspect]
     Active Substance: CYCLOPHOSPHAMIDE
     Indication: Drug therapy
  8. CLOFARABINE [Suspect]
     Active Substance: CLOFARABINE
     Indication: Acute myeloid leukaemia refractory
     Route: 065
  9. CLOFARABINE [Suspect]
     Active Substance: CLOFARABINE
     Indication: Drug therapy
  10. CYTARABINE [Suspect]
     Active Substance: CYTARABINE
     Indication: Acute myeloid leukaemia refractory
     Route: 065
  11. CYTARABINE [Suspect]
     Active Substance: CYTARABINE
     Indication: Drug therapy
     Dosage: 200 MG/M2, QD (FOR 7 DAYS DURING INDUCTION THERAPY)
     Route: 065
  12. CYTARABINE [Suspect]
     Active Substance: CYTARABINE
     Indication: Bone marrow conditioning regimen
     Route: 065
  13. CYTARABINE [Suspect]
     Active Substance: CYTARABINE
     Route: 065
  14. CYTARABINE [Suspect]
     Active Substance: CYTARABINE
     Dosage: 3 MG/M2, Q12H FOR 3 DAYS DURING CONSOLIDATION THERAPY
     Route: 065
  15. CYTARABINE [Suspect]
     Active Substance: CYTARABINE
     Route: 037
  16. DECADRON (DEXAMETHASONE SODIUM PHOSPHATE) [Suspect]
     Active Substance: DEXAMETHASONE SODIUM PHOSPHATE
     Indication: Acute myeloid leukaemia
     Route: 037
  17. ERWINASE [Suspect]
     Active Substance: ASPARAGINASE ERWINIA CHRYSANTHEMI
     Indication: Acute myeloid leukaemia
     Route: 065
  18. FLUDARABINE PHOSPHATE [Suspect]
     Active Substance: FLUDARABINE PHOSPHATE
     Indication: Acute myeloid leukaemia refractory
     Route: 065
  19. GEMTUZUMAB OZOGAMICIN [Suspect]
     Active Substance: GEMTUZUMAB OZOGAMICIN
     Indication: Acute myeloid leukaemia refractory
     Route: 042
  20. HYDROCORTISONE [Suspect]
     Active Substance: HYDROCORTISONE
     Indication: Acute myeloid leukaemia
     Route: 037
  21. LEVOLEUCOVORIN CALCIUM [Suspect]
     Active Substance: LEVOLEUCOVORIN CALCIUM
     Indication: Acute myeloid leukaemia
     Route: 065
  22. METHOTREXATE [Suspect]
     Active Substance: METHOTREXATE
     Route: 037
  23. METHOTREXATE [Suspect]
     Active Substance: METHOTREXATE
     Route: 065
  24. METHOTREXATE [Suspect]
     Active Substance: METHOTREXATE
     Indication: Acute myeloid leukaemia refractory
     Route: 037
  25. MITOXANTRONE [Suspect]
     Active Substance: MITOXANTRONE HYDROCHLORIDE
     Indication: Acute myeloid leukaemia
     Route: 065
  26. PONATINIB [Suspect]
     Active Substance: PONATINIB
     Indication: Acute myeloid leukaemia refractory
     Route: 065
  27. DEFIBROTIDE [Concomitant]
     Active Substance: DEFIBROTIDE (BOVINE)
     Indication: Prophylaxis
     Route: 065
  28. URSODIOL [Concomitant]
     Active Substance: URSODIOL
     Indication: Prophylaxis
     Route: 065

REACTIONS (7)
  - Acute myeloid leukaemia recurrent [Fatal]
  - Venoocclusive liver disease [Unknown]
  - Pseudomonal sepsis [Unknown]
  - Pancytopenia [Not Recovered/Not Resolved]
  - Pseudomonas infection [Unknown]
  - Drug resistance [Unknown]
  - Drug ineffective [Unknown]
